FAERS Safety Report 8962460 (Version 1)
Quarter: 2012Q4

REPORT INFORMATION
  Report Type: Spontaneous
  Country: US (occurrence: None)
  Receive Date: 20121211
  Receipt Date: 20121211
  Transmission Date: 20130627
  Serious: Yes (Hospitalization)
  Sender: FDA-Public Use
  Company Number: None

PATIENT
  Age: 75 Year
  Sex: Male
  Weight: 85.28 kg

DRUGS (10)
  1. DECITABINE [Suspect]
     Indication: MDS
     Route: 058
     Dates: start: 20110110, end: 20110615
  2. NEXIUM [Concomitant]
  3. GLYBURIDE [Concomitant]
  4. CIPROFLOXACIN [Concomitant]
  5. NAMENDA [Concomitant]
  6. EXELON [Concomitant]
  7. ACTOS [Concomitant]
  8. LOPRESSOR [Concomitant]
  9. NITRO [Concomitant]
  10. PLENDIL [Concomitant]

REACTIONS (9)
  - Neutropenia [None]
  - Pneumonia aspiration [None]
  - Fungal infection [None]
  - Productive cough [None]
  - Dyspnoea [None]
  - Pyrexia [None]
  - Confusional state [None]
  - Hyponatraemia [None]
  - Liver function test abnormal [None]
